FAERS Safety Report 8455233-4 (Version None)
Quarter: 2012Q2

REPORT INFORMATION
  Report Type: 
  Country: None (occurrence: None)
  Receive Date: 20120621
  Receipt Date: 20120614
  Transmission Date: 20120825
  Serious: Yes (Hospitalization)
  Sender: FDA-Public Use
  Company Number: AR-GENZYME-CERZ-1002452

PATIENT
  Sex: Male
  Weight: 61 kg

DRUGS (1)
  1. CEREZYME [Suspect]
     Indication: GAUCHER'S DISEASE
     Dosage: 34 U/KG, Q2W
     Route: 042
     Dates: start: 19960101

REACTIONS (4)
  - ASCITES [None]
  - SEPSIS [None]
  - VOLVULUS [None]
  - FISTULA [None]
